FAERS Safety Report 10788531 (Version 3)
Quarter: 2015Q2

REPORT INFORMATION
  Report Type: Spontaneous
  Country: US (occurrence: US)
  Receive Date: 20150212
  Receipt Date: 20150518
  Transmission Date: 20150821
  Serious: No
  Sender: FDA-Public Use
  Company Number: US-009507513-1502USA005492

PATIENT
  Sex: Female

DRUGS (2)
  1. MK-0000 (111) [Suspect]
     Active Substance: INVESTIGATIONAL PRODUCT
     Dosage: UNK
  2. COPPER-CONTAINING INTRAUTERINE DEVICE (IUD) [Suspect]
     Active Substance: COPPER\INTRAUTERINE DEVICE
     Dosage: UNK

REACTIONS (3)
  - Device difficult to use [Unknown]
  - Medication error [Unknown]
  - No adverse event [Unknown]
